FAERS Safety Report 12586966 (Version 1)
Quarter: 2016Q3

REPORT INFORMATION
  Report Type: Spontaneous
  Country: IN (occurrence: IN)
  Receive Date: 20160725
  Receipt Date: 20160725
  Transmission Date: 20161109
  Serious: Yes (Death, Hospitalization, Other)
  Sender: FDA-Public Use
  Company Number: IN-PAR PHARMACEUTICAL COMPANIES-2016SCPR015647

PATIENT

DRUGS (2)
  1. DIAZEPAM. [Suspect]
     Active Substance: DIAZEPAM
     Indication: PRODUCT USED FOR UNKNOWN INDICATION
     Dosage: UNK UNK, UNKNOWN, 25 TABLETS
     Route: 065
  2. PARAQUAT [Suspect]
     Active Substance: PARAQUAT
     Indication: PRODUCT USED FOR UNKNOWN INDICATION
     Dosage: UNK UNK, UNKNOWN, 150 ML
     Route: 048

REACTIONS (5)
  - Acute respiratory distress syndrome [Unknown]
  - Multiple organ dysfunction syndrome [Unknown]
  - Toxicity to various agents [Fatal]
  - Respiratory acidosis [Unknown]
  - Shock [Unknown]
